FAERS Safety Report 8593664-2 (Version None)
Quarter: 2012Q3

REPORT INFORMATION
  Report Type: 
  Country: None (occurrence: None)
  Receive Date: 20120814
  Receipt Date: 20120808
  Transmission Date: 20120928
  Serious: Yes (Other)
  Sender: FDA-Public Use
  Company Number: JP-VERTEX PHARMACEUTICALS INC.-AE-2012-009790

PATIENT
  Age: 55 Year
  Sex: Male

DRUGS (5)
  1. TELAVIC [Suspect]
     Indication: HEPATITIS C
     Route: 048
     Dates: start: 20120508, end: 20120509
  2. AMLODIPINE [Concomitant]
     Route: 048
  3. TELAVIC [Suspect]
     Route: 048
     Dates: start: 20120510, end: 20120731
  4. PEGINTERFERON ALFA-2B [Concomitant]
     Indication: HEPATITIS C
     Route: 048
     Dates: start: 20120508
  5. RIBAVIRIN [Concomitant]
     Indication: HEPATITIS C
     Route: 048
     Dates: start: 20120508

REACTIONS (1)
  - DRUG ERUPTION [None]
